FAERS Safety Report 12380008 (Version 2)
Quarter: 2016Q2

REPORT INFORMATION
  Report Type: Report from Study
  Country: FR (occurrence: FR)
  Receive Date: 20160518
  Receipt Date: 20160527
  Transmission Date: 20160815
  Serious: Yes (Other)
  Sender: FDA-Public Use
  Company Number: FR-BEH-2016062589

PATIENT
  Age: 4 Year
  Sex: Female

DRUGS (2)
  1. INTRAVENOUS IMMUNOGLOBULINS [Suspect]
     Active Substance: HUMAN IMMUNOGLOBULIN G
     Indication: HENOCH-SCHONLEIN PURPURA
     Route: 042
  2. INTRAVENOUS IMMUNOGLOBULINS [Suspect]
     Active Substance: HUMAN IMMUNOGLOBULIN G
     Indication: GASTROINTESTINAL DISORDER
     Route: 042

REACTIONS (2)
  - Nephrotic syndrome [Unknown]
  - Proteinuria [Unknown]
